FAERS Safety Report 24569140 (Version 1)
Quarter: 2024Q4

REPORT INFORMATION
  Report Type: Spontaneous
  Country: US (occurrence: None)
  Receive Date: 20241030
  Receipt Date: 20241030
  Transmission Date: 20250114
  Serious: Yes (Other)
  Sender: Public
  Company Number: None

PATIENT
  Age: 4 Month
  Sex: Female
  Weight: 6.60 kg

DRUGS (2)
  1. NIRSEVIMAB-ALIP [Suspect]
     Active Substance: NIRSEVIMAB-ALIP
     Dosage: OTHER FREQUENCY : ONCE;?
     Route: 030
  2. Nirsevimnab-Alip [Concomitant]
     Dates: start: 20241018, end: 20241018

REACTIONS (3)
  - Injection site erythema [None]
  - Peripheral swelling [None]
  - Adverse drug reaction [None]

NARRATIVE: CASE EVENT DATE: 20241018
